FAERS Safety Report 7290551-7 (Version None)
Quarter: 2011Q1

REPORT INFORMATION
  Report Type: 
  Country: None (occurrence: None)
  Receive Date: 20110214
  Receipt Date: 20110210
  Transmission Date: 20110831
  Serious: No
  Sender: FDA-Public Use
  Company Number: US-PFIZER INC-2011030511

PATIENT
  Sex: Female
  Weight: 19 kg

DRUGS (2)
  1. GEODON [Suspect]
     Indication: BIPOLAR DISORDER
     Dosage: 20 MG, 2X/DAY
     Route: 048
     Dates: start: 20110210
  2. CONCERTA [Concomitant]
     Dosage: 36 MG, UNK

REACTIONS (1)
  - SOMNOLENCE [None]
